FAERS Safety Report 8314227 (Version 2)
Quarter: 2013Q1

REPORT INFORMATION
  Report Type: Spontaneous
  Country: US (occurrence: US)
  Receive Date: 20111228
  Receipt Date: 20130114
  Transmission Date: 20140127
  Serious: Yes (Hospitalization)
  Sender: FDA-Public Use
  Company Number: US-GLAXOSMITHKLINE-A0928705A

PATIENT
  Age: 45 Year
  Sex: Male

DRUGS (2)
  1. AVANDIA [Suspect]
     Indication: DIABETES MELLITUS
     Dosage: 8MG PER DAY
     Route: 048
     Dates: start: 200302
  2. ACTOS [Concomitant]
     Indication: DIABETES MELLITUS

REACTIONS (7)
  - Cardiac arrest [Not Recovered/Not Resolved]
  - Atrial fibrillation [Unknown]
  - Myocardial infarction [Unknown]
  - Ventricular tachycardia [Unknown]
  - Cardiac failure congestive [Unknown]
  - Implantable defibrillator insertion [Unknown]
  - Mobility decreased [Unknown]
